FAERS Safety Report 8555519-9 (Version None)
Quarter: 2012Q3

REPORT INFORMATION
  Report Type: 
  Country: None (occurrence: None)
  Receive Date: 20120731
  Receipt Date: 20120723
  Transmission Date: 20120928
  Serious: Yes (Hospitalization, Other)
  Sender: FDA-Public Use
  Company Number: US-009507513-1207USA010761

PATIENT

DRUGS (5)
  1. PREDNISONE [Suspect]
  2. PRINIVIL [Suspect]
     Dosage: 10 MG, UNK
  3. ZOCOR [Suspect]
     Dosage: 40 MG, UNK
     Route: 048
  4. MUSCLETECH HYDROXYCUT [Suspect]
     Dosage: UNK
  5. CITALOPRAM HYDROBROMIDE [Suspect]
     Dosage: 20 MG, UNK

REACTIONS (4)
  - HYPERTENSION [None]
  - CEREBRAL INFARCTION [None]
  - CEREBRAL VASOCONSTRICTION [None]
  - HYPOTENSION [None]
